FAERS Safety Report 12605364 (Version 1)
Quarter: 2016Q3

REPORT INFORMATION
  Report Type: Report from Study
  Country: US (occurrence: US)
  Receive Date: 20160729
  Receipt Date: 20160729
  Transmission Date: 20161109
  Serious: Yes (Hospitalization)
  Sender: FDA-Public Use
  Company Number: US-ROCHE-1747811

PATIENT
  Age: 44 Year
  Sex: Male
  Weight: 77.7 kg

DRUGS (61)
  1. ONDANSETRON [Concomitant]
     Active Substance: ONDANSETRON
     Indication: PROPHYLAXIS
     Dosage: PROPHYLAXIS TO CHEMO INDUCED NAUSEA/VOMITING
     Route: 065
     Dates: start: 20160421, end: 20160510
  2. DIPHENHYDRAMINE. [Concomitant]
     Active Substance: DIPHENHYDRAMINE
     Indication: PREMEDICATION
     Dosage: RITUXIMAB PRE MEDICATION
     Route: 065
     Dates: start: 20160418, end: 20160418
  3. ENOXAPARIN [Concomitant]
     Active Substance: ENOXAPARIN
     Route: 065
     Dates: start: 20160527, end: 20160530
  4. MAGNESIUM SULFATE. [Concomitant]
     Active Substance: MAGNESIUM SULFATE
     Indication: CONSTIPATION
     Route: 065
     Dates: start: 20160528, end: 20160528
  5. DOXORUBICIN [Suspect]
     Active Substance: DOXORUBICIN
     Indication: DIFFUSE LARGE B-CELL LYMPHOMA
     Dosage: THE MOST RECENT DOSE WAS ADMINISTERED PRIOR TO FEBRILE NEUTROPENIA ON 18/APR/2016 (DOSE OF 100 MG)?M
     Route: 042
     Dates: start: 20160418
  6. ACYCLOVIR. [Concomitant]
     Active Substance: ACYCLOVIR
     Dosage: HERPES ZOSTER PROPHYLAXIS
     Route: 065
     Dates: start: 20160421
  7. ALLOPURINOL. [Concomitant]
     Active Substance: ALLOPURINOL
     Indication: PROPHYLAXIS
     Dosage: PROPHYLAXIS TO TLS
     Route: 065
     Dates: start: 20160421, end: 20160503
  8. FILGRASTIM [Concomitant]
     Active Substance: FILGRASTIM
     Dosage: NEUTROPENIA PROPHYLAXIS
     Route: 065
     Dates: start: 20160422, end: 20160422
  9. MAGNESIUM HYDROXIDE. [Concomitant]
     Active Substance: MAGNESIUM HYDROXIDE
     Indication: PROPHYLAXIS
     Dosage: PROPHYLAXIS TO CONSTIPATION
     Route: 065
     Dates: start: 20160422, end: 20160503
  10. NORMAL SALINE [Concomitant]
     Active Substance: SODIUM CHLORIDE
     Route: 065
     Dates: start: 20160510, end: 20160510
  11. NORMAL SALINE [Concomitant]
     Active Substance: SODIUM CHLORIDE
     Route: 065
     Dates: start: 20160526, end: 20160526
  12. FOSAPREPITANT [Concomitant]
     Active Substance: FOSAPREPITANT
     Route: 065
     Dates: start: 20160510, end: 20160510
  13. DIPHENHYDRAMINE. [Concomitant]
     Active Substance: DIPHENHYDRAMINE
     Route: 065
     Dates: start: 20160510, end: 20160510
  14. ACETAMINOPHEN. [Concomitant]
     Active Substance: ACETAMINOPHEN
     Route: 065
     Dates: start: 20160601, end: 20160604
  15. ACETAMINOPHEN. [Concomitant]
     Active Substance: ACETAMINOPHEN
     Route: 065
     Dates: start: 20160604, end: 20160604
  16. IOHEXOL [Concomitant]
     Active Substance: IOHEXOL
     Route: 065
     Dates: start: 20160526, end: 20160526
  17. POTASSIUM CHLORIDE. [Concomitant]
     Active Substance: POTASSIUM CHLORIDE
     Indication: HYPOKALAEMIA
     Route: 065
     Dates: start: 20160531, end: 20160531
  18. NORMOSOL-R [Concomitant]
     Active Substance: MAGNESIUM CHLORIDE\POTASSIUM CHLORIDE\SODIUM ACETATE ANHYDROUS\SODIUM CHLORIDE\SODIUM GLUCONATE
     Indication: BLOOD ELECTROLYTES
     Route: 065
     Dates: start: 20160601, end: 20160603
  19. PEGFILGRASTIM [Concomitant]
     Active Substance: PEGFILGRASTIM
     Dosage: NEUTROPENIA PROPHYLAXIS
     Route: 065
     Dates: start: 20160511, end: 20160511
  20. PROCHLORPERAZINE. [Concomitant]
     Active Substance: PROCHLORPERAZINE
     Route: 065
     Dates: start: 20160518, end: 20160520
  21. PANTOPRAZOLE [Concomitant]
     Active Substance: PANTOPRAZOLE SODIUM
     Indication: PROPHYLAXIS
     Dosage: PROPHYLAXIS TO GERD
     Route: 065
     Dates: start: 20160421
  22. NORMAL SALINE [Concomitant]
     Active Substance: SODIUM CHLORIDE
     Indication: DEHYDRATION
     Route: 065
     Dates: start: 20160417, end: 20160417
  23. NORMAL SALINE [Concomitant]
     Active Substance: SODIUM CHLORIDE
     Route: 065
     Dates: start: 20160527, end: 20160527
  24. PALONOSETRON [Concomitant]
     Active Substance: PALONOSETRON
     Route: 065
     Dates: start: 20160510, end: 20160510
  25. FOSAPREPITANT [Concomitant]
     Active Substance: FOSAPREPITANT
     Indication: PROPHYLAXIS
     Route: 065
     Dates: start: 20160418, end: 20160418
  26. LACTULOSE. [Concomitant]
     Active Substance: LACTULOSE
     Indication: PROPHYLAXIS
     Route: 065
     Dates: start: 20160418, end: 20160418
  27. VINCRISTINE [Suspect]
     Active Substance: VINCRISTINE
     Indication: DIFFUSE LARGE B-CELL LYMPHOMA
     Dosage: THE MOST RECENT DOSE WAS ADMINISTERED PRIOR TO FEBRILE NEUTROPENIA ON 18/APR/2016 (DOSE OF 2 MG)?MOS
     Route: 050
     Dates: start: 20160418
  28. FILGRASTIM [Concomitant]
     Active Substance: FILGRASTIM
     Indication: PROPHYLAXIS
     Dosage: NEUTROPENIA PROPHYLAXIS
     Route: 065
     Dates: start: 20160421, end: 20160422
  29. NORMAL SALINE [Concomitant]
     Active Substance: SODIUM CHLORIDE
     Route: 065
     Dates: start: 20160419, end: 20160422
  30. ACETAMINOPHEN. [Concomitant]
     Active Substance: ACETAMINOPHEN
     Indication: PAIN
     Route: 065
     Dates: start: 20160510, end: 20160510
  31. IOHEXOL [Concomitant]
     Active Substance: IOHEXOL
     Route: 065
     Dates: start: 20160425, end: 20160425
  32. COMPAZINE [Concomitant]
     Active Substance: PROCHLORPERAZINE MALEATE
     Indication: NAUSEA
     Route: 065
     Dates: start: 20160421
  33. DOCUSATE SODIUM. [Concomitant]
     Active Substance: DOCUSATE SODIUM
     Indication: PROPHYLAXIS
     Dosage: PROPHYLAXIS TO CONSTIPATION
     Route: 065
     Dates: start: 20160421, end: 20160527
  34. NORMAL SALINE [Concomitant]
     Active Substance: SODIUM CHLORIDE
     Route: 065
     Dates: start: 20160425, end: 20160425
  35. NORMAL SALINE [Concomitant]
     Active Substance: SODIUM CHLORIDE
     Route: 065
     Dates: start: 20160518, end: 20160520
  36. FUROSEMIDE. [Concomitant]
     Active Substance: FUROSEMIDE
     Indication: OEDEMA
     Route: 065
     Dates: start: 20160420, end: 20160421
  37. IOHEXOL [Concomitant]
     Active Substance: IOHEXOL
     Route: 065
     Dates: start: 20160518, end: 20160518
  38. ENOXAPARIN [Concomitant]
     Active Substance: ENOXAPARIN
     Indication: THROMBOSIS PROPHYLAXIS
     Dosage: PROPHYLAXIS FOR DVT
     Route: 065
     Dates: start: 20160425, end: 20160425
  39. ENOXAPARIN [Concomitant]
     Active Substance: ENOXAPARIN
     Route: 065
     Dates: start: 20160602, end: 20160606
  40. LACTATED RINGERS [Concomitant]
     Active Substance: CALCIUM CHLORIDE\POTASSIUM CHLORIDE\SODIUM CHLORIDE\SODIUM LACTATE
     Indication: BLOOD ELECTROLYTES
     Route: 040
     Dates: start: 20160602, end: 20160602
  41. PREDNISONE. [Suspect]
     Active Substance: PREDNISONE
     Indication: DIFFUSE LARGE B-CELL LYMPHOMA
     Dosage: THE MOST RECENT DOSE WAS ADMINISTERED PRIOR TO FEBRILE NEUTROPENIA ON 22/APR/2016 (DOSE OF 100 MG)?M
     Route: 048
     Dates: start: 20160418
  42. FILGRASTIM [Concomitant]
     Active Substance: FILGRASTIM
     Route: 065
     Dates: start: 20160425, end: 20160426
  43. POLYETHYLENE GLYCOL [Concomitant]
     Active Substance: POLYETHYLENE GLYCOLS
     Indication: PROPHYLAXIS
     Dosage: PROPHYLAXIS TO CONSTIPATION
     Route: 065
     Dates: start: 20160421
  44. NORMAL SALINE [Concomitant]
     Active Substance: SODIUM CHLORIDE
     Route: 065
     Dates: start: 20160518, end: 20160518
  45. PALONOSETRON [Concomitant]
     Active Substance: PALONOSETRON
     Indication: PROPHYLAXIS
     Dosage: PROPHYLAXIS FOR CHEMO INDUCED NAUSEA/VOMITING
     Route: 065
     Dates: start: 20160418, end: 20160418
  46. DEXAMETHASONE. [Concomitant]
     Active Substance: DEXAMETHASONE
     Route: 065
     Dates: start: 20160510, end: 20160510
  47. ACETAMINOPHEN. [Concomitant]
     Active Substance: ACETAMINOPHEN
     Indication: PREMEDICATION
     Dosage: RITUXIMAB PRE MEDICATION
     Route: 065
     Dates: start: 20160418, end: 20160418
  48. HYDROMORPHONE [Concomitant]
     Active Substance: HYDROMORPHONE
     Indication: PAIN
     Route: 065
     Dates: start: 20160526, end: 20160528
  49. HYDROMORPHONE [Concomitant]
     Active Substance: HYDROMORPHONE
     Route: 065
     Dates: start: 20160601, end: 20160603
  50. KETOROLAC [Concomitant]
     Active Substance: KETOROLAC\KETOROLAC TROMETHAMINE
     Indication: PAIN
     Route: 065
     Dates: start: 20160601, end: 20160602
  51. VENETOCLAX [Suspect]
     Active Substance: VENETOCLAX
     Indication: DIFFUSE LARGE B-CELL LYMPHOMA
     Dosage: THE MOST RECENT DOSE ADMINISTERED PRIOR TO FEBRILE NEUTROPENIAQ WAS 800 MG ADMINISTERED ON 24/APR/20
     Route: 048
     Dates: start: 20160421
  52. RITUXIMAB [Suspect]
     Active Substance: RITUXIMAB
     Indication: DIFFUSE LARGE B-CELL LYMPHOMA
     Dosage: THE MOST RECENT DOSE WAS ADMINISTERED PRIOR TO FEBRILE NEUTROPENIA ON 18/APR/2016 (DOSE OF 750 MG)?T
     Route: 042
     Dates: start: 20160418
  53. CYCLOPHOSPHAMIDE. [Suspect]
     Active Substance: CYCLOPHOSPHAMIDE
     Indication: DIFFUSE LARGE B-CELL LYMPHOMA
     Dosage: THE MOST RECENT DOSE WAS ADMINISTERED PRIOR TO FEBRILE NEUTROPENIA ON 18/APR/2016 (DOSE OF 1500 MG)
     Route: 042
     Dates: start: 20160418
  54. FILGRASTIM [Concomitant]
     Active Substance: FILGRASTIM
     Route: 065
     Dates: start: 20160511, end: 20160511
  55. PROCHLORPERAZINE. [Concomitant]
     Active Substance: PROCHLORPERAZINE
     Indication: PROPHYLAXIS
     Dosage: PROPHYLAXIS TO CHEMO INDUCED NAUSEA/VOMITING
     Route: 065
     Dates: start: 20160421
  56. OXYCODONE [Concomitant]
     Active Substance: OXYCODONE
     Indication: PAIN
     Route: 065
     Dates: start: 20160510
  57. MAGNESIUM SULFATE. [Concomitant]
     Active Substance: MAGNESIUM SULFATE
     Route: 065
     Dates: start: 20160531, end: 20160531
  58. SENNA [Concomitant]
     Active Substance: SENNA LEAF\SENNOSIDES\SENNOSIDES A AND B
     Indication: PROPHYLAXIS
     Dosage: PROPHYLAXIS TO CONSTIPATION
     Route: 065
     Dates: start: 20160421, end: 20160527
  59. DEXAMETHASONE. [Concomitant]
     Active Substance: DEXAMETHASONE
     Indication: PREMEDICATION
     Route: 065
     Dates: start: 20160418, end: 20160418
  60. DIPHENHYDRAMINE. [Concomitant]
     Active Substance: DIPHENHYDRAMINE
     Route: 065
     Dates: start: 20160518, end: 20160518
  61. NEOMYCIN SULFATE. [Concomitant]
     Active Substance: NEOMYCIN SULFATE
     Route: 065
     Dates: start: 20160531, end: 20160531

REACTIONS (3)
  - Febrile neutropenia [Recovered/Resolved]
  - Small intestinal obstruction [Recovered/Resolved]
  - Small intestinal obstruction [Recovered/Resolved with Sequelae]

NARRATIVE: CASE EVENT DATE: 20160424
